FAERS Safety Report 5612663-3 (Version None)
Quarter: 2008Q1

REPORT INFORMATION
  Report Type: 
  Country: None (occurrence: None)
  Receive Date: 20080201
  Receipt Date: 20080201
  Transmission Date: 20080703
  Serious: Yes (Hospitalization)
  Sender: FDA-Public Use
  Company Number: None

PATIENT
  Sex: Female
  Weight: 16.9 kg

DRUGS (13)
  1. MERCAPTOPURINE [Suspect]
     Dosage: 1700 MG
  2. METHOTREXATE [Suspect]
     Dosage: 49.5 MG
  3. VINCRISTINE SULFATE [Suspect]
     Dosage: 2 MG
  4. DEXAMETHASONE TAB [Suspect]
     Dosage: 20 MG
  5. DIFLUCAN [Concomitant]
  6. FLAGYL [Concomitant]
  7. GANCICLOVIR [Concomitant]
  8. PROTONIX [Concomitant]
  9. VANCOMYCIN [Concomitant]
  10. DOPAMINE HCL [Concomitant]
  11. MORPHINE [Concomitant]
  12. OCTREOTIDE ACETATE [Concomitant]
  13. VERSED [Concomitant]

REACTIONS (21)
  - ACIDOSIS [None]
  - ACUTE PRERENAL FAILURE [None]
  - BLOOD BILIRUBIN INCREASED [None]
  - BLOOD CULTURE POSITIVE [None]
  - CULTURE STOOL POSITIVE [None]
  - DEHYDRATION [None]
  - DIALYSIS [None]
  - DIARRHOEA HAEMORRHAGIC [None]
  - FUNGUS STOOL IDENTIFIED [None]
  - GASTROINTESTINAL HAEMORRHAGE [None]
  - GIARDIASIS [None]
  - HEPATIC FUNCTION ABNORMAL [None]
  - KLEBSIELLA INFECTION [None]
  - LOSS OF CONSCIOUSNESS [None]
  - MEAN ARTERIAL PRESSURE DECREASED [None]
  - NEUTROPENIA [None]
  - NO THERAPEUTIC RESPONSE [None]
  - OXYGEN SATURATION DECREASED [None]
  - PANCYTOPENIA [None]
  - PYREXIA [None]
  - SHOCK [None]
